FAERS Safety Report 11705363 (Version 1)
Quarter: 2015Q4

REPORT INFORMATION
  Report Type: Spontaneous
  Country: US (occurrence: US)
  Receive Date: 20151106
  Receipt Date: 20151106
  Transmission Date: 20160304
  Serious: No
  Sender: FDA-Public Use
  Company Number: US-ACTELION PHARMACEUTICALS US, INC.-A-NJ2015-126742

PATIENT
  Age: 74 Year
  Sex: Female

DRUGS (9)
  1. VASELINE PURE [Concomitant]
     Active Substance: PETROLATUM
  2. METHOTREXATE [Concomitant]
     Active Substance: METHOTREXATE
  3. AMLODIPINE [Concomitant]
     Active Substance: AMLODIPINE BESYLATE
  4. CLARITIN [Concomitant]
     Active Substance: LORATADINE
  5. ALLEGRA [Concomitant]
     Active Substance: FEXOFENADINE HYDROCHLORIDE
  6. VALCHLOR [Suspect]
     Active Substance: MECHLORETHAMINE
     Indication: MYCOSIS FUNGOIDES
     Dosage: UNK
     Route: 061
     Dates: start: 201505
  7. FLUOCINOLONE [Concomitant]
     Active Substance: FLUOCINOLONE
  8. FOLIC ACID. [Concomitant]
     Active Substance: FOLIC ACID
  9. SPIRONOLACTONE. [Concomitant]
     Active Substance: SPIRONOLACTONE

REACTIONS (2)
  - Blood pressure fluctuation [Not Recovered/Not Resolved]
  - Dizziness [Not Recovered/Not Resolved]
